FAERS Safety Report 25460341 (Version 1)
Quarter: 2025Q2

REPORT INFORMATION
  Report Type: Spontaneous
  Country: US (occurrence: None)
  Receive Date: 20250619
  Receipt Date: 20250619
  Transmission Date: 20250716
  Serious: Yes (Other)
  Sender: FDA-CTU
  Company Number: None

PATIENT
  Age: 63 Year
  Sex: Female

DRUGS (12)
  1. ADEMPAS [Suspect]
     Active Substance: RIOCIGUAT
     Indication: Pulmonary hypertension
     Dosage: FREQUENCY : 3 TIMES A DAY;?
     Route: 048
     Dates: start: 20230131
  2. ALBUTEROL [Concomitant]
     Active Substance: ALBUTEROL
  3. FUROSEMIDE [Concomitant]
     Active Substance: FUROSEMIDE
  4. ALBUTEROL SULFATE [Concomitant]
     Active Substance: ALBUTEROL SULFATE
  5. atorvastation [Concomitant]
  6. WARFARIN [Suspect]
     Active Substance: WARFARIN
  7. LIDOCAINE PATCH [Concomitant]
     Active Substance: LIDOCAINE
  8. TIZANIDINE [Concomitant]
     Active Substance: TIZANIDINE
  9. estrace vag cr [Concomitant]
  10. hydroxyzine senna [Concomitant]
  11. hydroquinone top cr [Concomitant]
  12. NITROFURANTOIN [Concomitant]
     Active Substance: NITROFURANTOIN

REACTIONS (2)
  - Urinary tract infection [None]
  - Sepsis [None]

NARRATIVE: CASE EVENT DATE: 20250531
